FAERS Safety Report 15825177 (Version 1)
Quarter: 2019Q1

REPORT INFORMATION
  Report Type: Spontaneous
  Country: US (occurrence: US)
  Receive Date: 20190114
  Receipt Date: 20190114
  Transmission Date: 20190417
  Serious: No
  Sender: FDA-Public Use
  Company Number: None

PATIENT
  Age: 63 Year
  Sex: Female
  Weight: 72 kg

DRUGS (1)
  1. MYRBETRIQ [Suspect]
     Active Substance: MIRABEGRON
     Indication: BLADDER DISORDER
     Dosage: ?          QUANTITY:1 CAPSULE(S);?
     Route: 048
     Dates: start: 20181205, end: 20190109

REACTIONS (5)
  - Neurological symptom [None]
  - Hypoaesthesia [None]
  - Musculoskeletal discomfort [None]
  - Paraesthesia [None]
  - Mobility decreased [None]

NARRATIVE: CASE EVENT DATE: 20190107
